FAERS Safety Report 6978320-6 (Version None)
Quarter: 2010Q3

REPORT INFORMATION
  Report Type: 
  Country: None (occurrence: None)
  Receive Date: 20100913
  Receipt Date: 20100909
  Transmission Date: 20110219
  Serious: Yes (Life-Threatening, Hospitalization)
  Sender: FDA-Public Use
  Company Number: FR-ASTRAZENECA-2010SE42355

PATIENT
  Age: 24893 Day
  Sex: Male

DRUGS (5)
  1. BUPIVACAINE HCL [Suspect]
     Indication: SPINAL ANAESTHESIA
     Route: 037
     Dates: start: 20100408
  2. NAROPIN [Suspect]
     Indication: ANAESTHESIA
     Route: 042
     Dates: start: 20100408
  3. CEPHAZOLINE [Suspect]
     Indication: ANTIBIOTIC PROPHYLAXIS
     Route: 042
     Dates: start: 20100408
  4. SUFENTANIL CITRATE [Suspect]
     Indication: SPINAL ANAESTHESIA
     Route: 042
     Dates: start: 20100408
  5. MORPHINE [Suspect]
     Indication: SPINAL ANAESTHESIA
     Route: 042
     Dates: start: 20100408

REACTIONS (2)
  - DEPRESSED LEVEL OF CONSCIOUSNESS [None]
  - HYPERTONIA [None]
